FAERS Safety Report 21816316 (Version 1)
Quarter: 2023Q1

REPORT INFORMATION
  Report Type: Spontaneous
  Country: US (occurrence: US)
  Receive Date: 20230104
  Receipt Date: 20230104
  Transmission Date: 20230417
  Serious: Yes (Death)
  Sender: FDA-Public Use
  Company Number: US-002147023-NVSC2023US001286

PATIENT
  Sex: Female

DRUGS (2)
  1. ZARXIO [Suspect]
     Active Substance: FILGRASTIM-SNDZ
     Indication: Product used for unknown indication
     Dosage: 48MIU/0.8ML, 3 DAYS STRAIGHT (10LISY V1 US)
     Route: 065
  2. ZARXIO [Suspect]
     Active Substance: FILGRASTIM-SNDZ
     Dosage: LAST DOSE
     Route: 065
     Dates: start: 201908

REACTIONS (1)
  - Death [Fatal]
